FAERS Safety Report 13973442 (Version 2)
Quarter: 2017Q4

REPORT INFORMATION
  Report Type: Spontaneous
  Country: US (occurrence: US)
  Receive Date: 20170915
  Receipt Date: 20171007
  Transmission Date: 20180321
  Serious: No
  Sender: FDA-Public Use
  Company Number: US-TEVA-805187USA

PATIENT
  Age: 74 Year
  Sex: Female
  Weight: 70.37 kg

DRUGS (5)
  1. NASALCROM [Concomitant]
     Active Substance: CROMOLYN SODIUM
  2. PLAQUENIL [Concomitant]
     Active Substance: HYDROXYCHLOROQUINE SULFATE
  3. INTRAVENOUS IG GAMMAGARD [Concomitant]
  4. QVAR [Concomitant]
     Active Substance: BECLOMETHASONE DIPROPIONATE
     Indication: ASTHMA
     Dosage: 160 MICROGRAM DAILY; 2 PUFFS
  5. QNASL [Suspect]
     Active Substance: BECLOMETHASONE DIPROPIONATE
     Indication: HYPERSENSITIVITY
     Dosage: 80 MICROGRAM DAILY; 2 SPRAYS ONCE A DAY, USED ONCE
     Dates: start: 201709, end: 201709

REACTIONS (7)
  - Headache [Unknown]
  - Burning sensation [Unknown]
  - Discomfort [Unknown]
  - Rhinalgia [Recovered/Resolved]
  - Head discomfort [Unknown]
  - Adverse event [Unknown]
  - Reaction to excipient [Unknown]

NARRATIVE: CASE EVENT DATE: 201709
